FAERS Safety Report 9605187 (Version 2)
Quarter: 2013Q4

REPORT INFORMATION
  Report Type: Spontaneous
  Country: US (occurrence: US)
  Receive Date: 20131008
  Receipt Date: 20131008
  Transmission Date: 20140711
  Serious: Yes (Other)
  Sender: FDA-Public Use
  Company Number: US-US-EMD SERONO, INC.-236940K09USA

PATIENT
  Sex: Female

DRUGS (2)
  1. REBIF [Suspect]
     Indication: MULTIPLE SCLEROSIS
     Route: 058
     Dates: start: 20081007, end: 2012
  2. REBIF [Suspect]
     Route: 058
     Dates: start: 201303

REACTIONS (6)
  - Papilloma viral infection [Unknown]
  - Uterine haemorrhage [Recovered/Resolved]
  - Vaginal dysplasia [Unknown]
  - Post procedural haemorrhage [Recovered/Resolved]
  - Hernia [Not Recovered/Not Resolved]
  - Haematoma [Recovered/Resolved]
